FAERS Safety Report 10419733 (Version 2)
Quarter: 2014Q3

REPORT INFORMATION
  Report Type: Spontaneous
  Country: US (occurrence: US)
  Receive Date: 20140829
  Receipt Date: 20140912
  Transmission Date: 20150326
  Serious: Yes (Hospitalization, Other)
  Sender: FDA-Public Use
  Company Number: US-LUNDBECK-DKLU1103014

PATIENT
  Age: 2 Year
  Sex: Female
  Weight: 10.08 kg

DRUGS (1)
  1. SABRIL [Suspect]
     Active Substance: VIGABATRIN
     Indication: INFANTILE SPASMS
     Route: 048
     Dates: start: 201307

REACTIONS (5)
  - Nervous system disorder [Unknown]
  - Electroencephalogram abnormal [Unknown]
  - Tetrahydrobiopterin deficiency [Unknown]
  - Pyelonephritis [Unknown]
  - Status epilepticus [Unknown]

NARRATIVE: CASE EVENT DATE: 20140808
